FAERS Safety Report 4363687-8 (Version None)
Quarter: 2004Q2

REPORT INFORMATION
  Report Type: 
  Country: None (occurrence: None)
  Receive Date: 20040521
  Receipt Date: 20040521
  Transmission Date: 20050107
  Serious: Yes (Life-Threatening, Hospitalization)
  Sender: FDA-Public Use
  Company Number: None

PATIENT
  Age: 54 Year
  Sex: Male
  Weight: 114.9 kg

DRUGS (2)
  1. CARBOPLATIN [Suspect]
     Indication: ADENOCARCINOMA
     Dosage: 700 MG Q 21 DAYS IV
     Route: 042
     Dates: start: 20040507, end: 20040507
  2. DOCETAXEL [Suspect]
     Indication: ADENOCARCINOMA
     Dosage: 178 MG Q 21 DAYS IV
     Route: 042
     Dates: start: 20040507, end: 20040507

REACTIONS (1)
  - DYSPNOEA [None]
